FAERS Safety Report 25805112 (Version 5)
Quarter: 2025Q4

REPORT INFORMATION
  Report Type: Spontaneous
  Country: US (occurrence: US)
  Receive Date: 20250916
  Receipt Date: 20251103
  Transmission Date: 20260117
  Serious: No
  Sender: LUPIN
  Company Number: US-LUPIN PHARMACEUTICALS INC.-2025-08109

PATIENT
  Age: 43 Year
  Weight: 56.689 kg

DRUGS (4)
  1. BUPROPION HYDROCHLORIDE [Suspect]
     Active Substance: BUPROPION HYDROCHLORIDE
     Indication: Depressed mood
     Dosage: 2 DOSAGE FORM (TWO 150 MG IN THE MORNING), QD
     Route: 065
  2. ALBUTEROL [Concomitant]
     Active Substance: ALBUTEROL
     Indication: Asthma
     Dosage: UNK
     Route: 065
  3. SYMBICORT [Concomitant]
     Active Substance: BUDESONIDE\FORMOTEROL FUMARATE DIHYDRATE
     Indication: Asthma
     Dosage: UNK
     Route: 065
  4. COGENTIN [Concomitant]
     Active Substance: BENZTROPINE MESYLATE
     Indication: Musculoskeletal stiffness
     Dosage: UNK
     Route: 065

REACTIONS (8)
  - Irritability [Recovered/Resolved]
  - Memory impairment [Recovered/Resolved]
  - Product quality issue [Unknown]
  - Disturbance in attention [Recovered/Resolved]
  - Anger [Recovered/Resolved]
  - Nasal discomfort [Recovered/Resolved]
  - Rhinalgia [Recovered/Resolved]
  - Wrong technique in product usage process [Unknown]
